FAERS Safety Report 9368155 (Version 1)
Quarter: 2013Q2

REPORT INFORMATION
  Report Type: Spontaneous
  Country: US (occurrence: US)
  Receive Date: 20130625
  Receipt Date: 20130625
  Transmission Date: 20140414
  Serious: No
  Sender: FDA-Public Use
  Company Number: US-ASTELLAS-2013US003596

PATIENT
  Sex: Male

DRUGS (6)
  1. VESICARE [Suspect]
     Indication: MICTURITION URGENCY
     Dosage: UNK
     Route: 048
  2. DETROL [Concomitant]
     Indication: MICTURITION URGENCY
     Dosage: UNK
     Route: 065
     Dates: start: 201107
  3. ENABLEX                            /01760401/ [Concomitant]
     Indication: MICTURITION URGENCY
     Dosage: UNK
     Route: 065
     Dates: start: 201107
  4. FLEXERIL                           /00428402/ [Concomitant]
     Indication: PRODUCT USED FOR UNKNOWN INDICATION
     Dosage: UNK
     Route: 065
  5. LYRICA [Concomitant]
     Indication: PRODUCT USED FOR UNKNOWN INDICATION
     Dosage: UNK
     Route: 065
  6. NUCYNTA [Concomitant]
     Indication: PRODUCT USED FOR UNKNOWN INDICATION
     Dosage: UNK
     Route: 065

REACTIONS (1)
  - Drug ineffective [Unknown]
